FAERS Safety Report 16552066 (Version 1)
Quarter: 2019Q3

REPORT INFORMATION
  Report Type: Spontaneous
  Country: US (occurrence: US)
  Receive Date: 20190529
  Receipt Date: 20190529
  Transmission Date: 20191004
  Serious: Yes (Hospitalization)
  Sender: FDA-Public Use
  Company Number: None

PATIENT
  Age: 14 Year
  Sex: Female
  Weight: 69.5 kg

DRUGS (1)
  1. BINIMETINIBIB [Suspect]
     Active Substance: BINIMETINIB
     Route: 048
     Dates: start: 20190328, end: 20190518

REACTIONS (4)
  - Gastrointestinal haemorrhage [None]
  - Anaemia [None]
  - Haematemesis [None]
  - Haematochezia [None]

NARRATIVE: CASE EVENT DATE: 20190521
